FAERS Safety Report 19625992 (Version 1)
Quarter: 2021Q3

REPORT INFORMATION
  Report Type: Spontaneous
  Country: US (occurrence: US)
  Receive Date: 20210728
  Receipt Date: 20210728
  Transmission Date: 20211014
  Serious: No
  Sender: FDA-Public Use
  Company Number: None

PATIENT
  Age: 58 Year
  Sex: Female
  Weight: 139.05 kg

DRUGS (21)
  1. ALPRAZOLAM 0.25MG [Concomitant]
     Active Substance: ALPRAZOLAM
  2. CLONIDINE 0.1MG [Concomitant]
     Active Substance: CLONIDINE
  3. ALLOPURINOL 100MG [Concomitant]
     Active Substance: ALLOPURINOL
  4. PRAVASTATIN. [Concomitant]
     Active Substance: PRAVASTATIN
  5. ROPINIROLE 0.25MG [Concomitant]
  6. HYDROCODONE?ACETAMINOPHEN 10?325MG [Concomitant]
     Active Substance: ACETAMINOPHEN\HYDROCODONE
  7. MELATONIN 3MG [Concomitant]
  8. VENLAFAXINE 75MG [Concomitant]
     Active Substance: VENLAFAXINE HYDROCHLORIDE
  9. VITAMIN D [Concomitant]
     Active Substance: VITAMIN D NOS
  10. SPIRIVA RESPIMAT 1.25MCG/ACT [Concomitant]
  11. VENTOLIN HFA [Concomitant]
     Active Substance: ALBUTEROL SULFATE
  12. BIOTIN 1000MCG [Concomitant]
  13. FUROSEMIDE 40MG [Concomitant]
     Active Substance: FUROSEMIDE
  14. MIRTAZAPINE 30MG [Concomitant]
     Active Substance: MIRTAZAPINE
  15. TRAMADOL 50MG [Concomitant]
     Active Substance: TRAMADOL
  16. MORPHINE SULFATE ER 15MG [Concomitant]
     Active Substance: MORPHINE SULFATE
  17. CLOPIDOGREL [Concomitant]
     Active Substance: CLOPIDOGREL BISULFATE
  18. ONDANSETRON 8MG [Concomitant]
     Active Substance: ONDANSETRON
  19. VITAMIN B12 1000MCG [Concomitant]
  20. CAPECITABINE. [Suspect]
     Active Substance: CAPECITABINE
     Indication: BREAST CANCER
     Dosage: OTHER FREQUENCY:BID FOR 14/21 DAYS;?
     Route: 048
     Dates: start: 20200611
  21. SPIRONOLACTONE 50MG [Concomitant]
     Active Substance: SPIRONOLACTONE

REACTIONS (2)
  - Pain in extremity [None]
  - Back pain [None]

NARRATIVE: CASE EVENT DATE: 20210727
